FAERS Safety Report 5921365-5 (Version None)
Quarter: 2008Q4

REPORT INFORMATION
  Report Type: 
  Country: None (occurrence: None)
  Receive Date: 20081014
  Receipt Date: 20081003
  Transmission Date: 20090506
  Serious: Yes (Hospitalization)
  Sender: FDA-Public Use
  Company Number: 2008-184804-NL

PATIENT
  Age: 74 Year
  Sex: Male

DRUGS (3)
  1. MIRTAZAPINE [Suspect]
     Dosage: 15 MG QD ORAL
     Route: 048
     Dates: start: 20080522, end: 20080613
  2. RILUZOLE [Suspect]
     Dosage: 50 MG QD ORAL
     Route: 048
     Dates: start: 20080328, end: 20080613
  3. PREGABALIN [Concomitant]

REACTIONS (1)
  - HEPATITIS ACUTE [None]
